FAERS Safety Report 22206589 (Version 1)
Quarter: 2023Q2

REPORT INFORMATION
  Report Type: Spontaneous
  Country: CZ (occurrence: CZ)
  Receive Date: 20230413
  Receipt Date: 20230413
  Transmission Date: 20230721
  Serious: Yes (Other)
  Sender: FDA-Public Use
  Company Number: CZ-SUN PHARMACEUTICAL INDUSTRIES LTD-2023R1-384563

PATIENT
  Age: 46 Year
  Sex: Female

DRUGS (2)
  1. TIZANIDINE [Suspect]
     Active Substance: TIZANIDINE
     Indication: Multiple sclerosis
     Dosage: UNK
     Route: 065
  2. TIZANIDINE [Suspect]
     Active Substance: TIZANIDINE
     Indication: Crohn^s disease

REACTIONS (1)
  - Pancreatitis acute [Unknown]
